FAERS Safety Report 14860293 (Version 2)
Quarter: 2018Q2

REPORT INFORMATION
  Report Type: Spontaneous
  Country: US (occurrence: US)
  Receive Date: 20180508
  Receipt Date: 20180514
  Transmission Date: 20180711
  Serious: No
  Sender: FDA-Public Use
  Company Number: US-PFIZER INC-2018180561

PATIENT
  Age: 64 Year
  Sex: Female

DRUGS (2)
  1. DOCETAXEL. [Suspect]
     Active Substance: DOCETAXEL
     Indication: BREAST CANCER FEMALE
     Dosage: CYCLIC (EVERY WEEK, TOTAL OF 52 CYCLES)
     Dates: start: 201509, end: 201610
  2. TAXOTERE [Suspect]
     Active Substance: DOCETAXEL
     Indication: BREAST CANCER FEMALE
     Dosage: CYCLIC (EVERY WEEK, TOTAL OF 52 CYCLES)
     Dates: start: 201509, end: 201610

REACTIONS (5)
  - Hair disorder [Recovering/Resolving]
  - Hair colour changes [Recovering/Resolving]
  - Madarosis [Recovering/Resolving]
  - Hair texture abnormal [Recovering/Resolving]
  - Alopecia [Recovering/Resolving]

NARRATIVE: CASE EVENT DATE: 201510
